FAERS Safety Report 23623338 (Version 1)
Quarter: 2024Q1

REPORT INFORMATION
  Report Type: Spontaneous
  Country: US (occurrence: US)
  Receive Date: 20240312
  Receipt Date: 20240312
  Transmission Date: 20240410
  Serious: Yes (Other)
  Sender: FDA-Public Use
  Company Number: US-BRISTOL-MYERS SQUIBB COMPANY-2024-039336

PATIENT
  Age: 26 Year
  Sex: Male

DRUGS (3)
  1. THALOMID [Suspect]
     Active Substance: THALIDOMIDE
     Indication: Type 2 lepra reaction
     Dosage: FREQ : ONCE EVERY NIGHT
     Route: 048
     Dates: start: 202310
  2. THALOMID [Suspect]
     Active Substance: THALIDOMIDE
     Dosage: FREQ : ONCE EVERY NIGHT
     Route: 048
     Dates: start: 2023
  3. THALOMID [Suspect]
     Active Substance: THALIDOMIDE
     Dosage: FREQ : ONCE EVERY NIGHT
     Route: 048
     Dates: start: 2023, end: 20240125

REACTIONS (3)
  - Gonorrhoea [Unknown]
  - Herpes simplex [Unknown]
  - Chlamydial infection [Unknown]

NARRATIVE: CASE EVENT DATE: 20231001
